FAERS Safety Report 6192317-8 (Version None)
Quarter: 2009Q2

REPORT INFORMATION
  Report Type: 
  Country: None (occurrence: None)
  Receive Date: 20090515
  Receipt Date: 20090507
  Transmission Date: 20091009
  Serious: Yes (Disabling)
  Sender: FDA-Public Use
  Company Number: US-MERCK-0904USA04214

PATIENT
  Age: 82 Year
  Sex: Male

DRUGS (5)
  1. PRINIVIL [Suspect]
     Indication: BLOOD PRESSURE
     Route: 048
     Dates: start: 20050101
  2. PRINIVIL [Suspect]
     Route: 048
     Dates: start: 20050101, end: 20050101
  3. PRINIVIL [Suspect]
     Route: 048
     Dates: start: 20050101, end: 20050101
  4. COUMADIN [Concomitant]
     Route: 065
     Dates: start: 19990101
  5. VITAMINS (UNSPECIFIED) [Concomitant]
     Route: 065

REACTIONS (2)
  - HEARING IMPAIRED [None]
  - VISUAL IMPAIRMENT [None]
